FAERS Safety Report 10080569 (Version 3)
Quarter: 2014Q2

REPORT INFORMATION
  Report Type: Spontaneous
  Country: US (occurrence: US)
  Receive Date: 20140416
  Receipt Date: 20140430
  Transmission Date: 20141212
  Serious: Yes (Death, Other)
  Sender: FDA-Public Use
  Company Number: US-009507513-1404USA007365

PATIENT
  Sex: Male

DRUGS (7)
  1. PRINIVIL [Suspect]
     Dosage: UNK
     Route: 048
  2. TEMODAR [Suspect]
     Dosage: 100 MG, QD
     Route: 048
     Dates: start: 20130101, end: 201402
  3. HEXADROL TABLETS [Suspect]
     Dosage: UNK
     Route: 048
  4. KEPPRA [Concomitant]
     Dosage: UNK
  5. DEPAKOTE [Concomitant]
     Dosage: UNK
  6. VALIUM [Concomitant]
     Dosage: UNK
  7. MORPHINE [Concomitant]
     Dosage: UNK

REACTIONS (1)
  - Brain neoplasm malignant [Fatal]
